FAERS Safety Report 5456274-1 (Version None)
Quarter: 2007Q3

REPORT INFORMATION
  Report Type: 
  Country: None (occurrence: None)
  Receive Date: 20070918
  Receipt Date: 20070228
  Transmission Date: 20080115
  Serious: No
  Sender: FDA-Public Use
  Company Number: US-ASTRAZENECA-2006UW23236

PATIENT
  Sex: Female
  Weight: 115.5 kg

DRUGS (9)
  1. SEROQUEL [Suspect]
     Indication: PSYCHOTIC DISORDER
     Route: 048
     Dates: start: 19980101
  2. SEROQUEL [Suspect]
     Indication: BIPOLAR DISORDER
     Route: 048
     Dates: start: 19980101
  3. SEROQUEL [Suspect]
     Indication: DEPRESSION
     Route: 048
     Dates: start: 19980101
  4. FEN-PHEN [Concomitant]
  5. REDUX [Concomitant]
  6. CLOZARIL [Concomitant]
  7. RISPERDAL [Concomitant]
  8. COCAINE [Concomitant]
  9. SPEED [Concomitant]

REACTIONS (3)
  - EYE DISORDER [None]
  - HYPERGLYCAEMIA [None]
  - PAIN IN EXTREMITY [None]
